FAERS Safety Report 18399586 (Version 1)
Quarter: 2020Q4

REPORT INFORMATION
  Report Type: Spontaneous
  Country: US (occurrence: US)
  Receive Date: 20201019
  Receipt Date: 20201019
  Transmission Date: 20210114
  Serious: No
  Sender: FDA-Public Use
  Company Number: US-ALLERGAN-2007237US

PATIENT
  Age: 50 Year
  Sex: Male

DRUGS (1)
  1. VRAYLAR [Suspect]
     Active Substance: CARIPRAZINE
     Indication: ANGER
     Dosage: UNK
     Route: 048

REACTIONS (3)
  - Tachyphrenia [Unknown]
  - Off label use [Unknown]
  - Insomnia [Unknown]
